FAERS Safety Report 10371674 (Version 1)
Quarter: 2014Q1

REPORT INFORMATION
  Report Type: Spontaneous
  Country: US (occurrence: None)
  Receive Date: 20140306
  Receipt Date: 20140306
  Transmission Date: 20141002
  Serious: Yes (Other)
  Sender: FDA-Public Use
  Company Number: 163-21880-13080658

PATIENT
  Age: 70 Year
  Sex: Male
  Weight: 99.7 kg

DRUGS (1)
  1. REVLIMID [Suspect]
     Indication: MYELODYSPLASTIC SYNDROME
     Dosage: 25 MG, 5 IN 1 M, PO
     Route: 048
     Dates: start: 201301

REACTIONS (1)
  - Pancytopenia [None]
